FAERS Safety Report 4459706-0 (Version None)
Quarter: 2004Q3

REPORT INFORMATION
  Report Type: 
  Country: None (occurrence: None)
  Receive Date: 20040928
  Receipt Date: 20040921
  Transmission Date: 20050211
  Serious: Yes (Other)
  Sender: FDA-Public Use
  Company Number: US-JNJFOC-20040603954

PATIENT
  Sex: Female
  Weight: 53.52 kg

DRUGS (7)
  1. REMICADE [Suspect]
     Indication: RHEUMATOID ARTHRITIS
     Dosage: PATIENT ON INFLIXIMAB FOR THREE YEARS.
     Route: 042
  2. CELEBREX [Suspect]
     Indication: OSTEOARTHRITIS
  3. CELEBREX [Suspect]
     Indication: RHEUMATOID ARTHRITIS
  4. ASPIRIN [Suspect]
     Indication: OSTEOARTHRITIS
  5. ASPIRIN [Suspect]
     Indication: RHEUMATOID ARTHRITIS
     Dosage: ^MANY YEARS^  6-8 PER DAY
  6. METHOTREXATE [Concomitant]
     Route: 049
  7. METHOTREXATE [Concomitant]
     Indication: RHEUMATOID ARTHRITIS
     Route: 049

REACTIONS (3)
  - DRUG TOXICITY [None]
  - RENAL PAPILLARY NECROSIS [None]
  - URETHRAL POLYP [None]
